FAERS Safety Report 17225896 (Version 3)
Quarter: 2020Q2

REPORT INFORMATION
  Report Type: Report from Study
  Country: US (occurrence: US)
  Receive Date: 20200102
  Receipt Date: 20200622
  Transmission Date: 20200713
  Serious: Yes (Hospitalization)
  Sender: FDA-Public Use
  Company Number: US-PFIZER INC-2019557589

PATIENT
  Age: 56 Year
  Sex: Female
  Weight: 60.3 kg

DRUGS (5)
  1. DAUNORUBICIN [Suspect]
     Active Substance: DAUNORUBICIN
     Indication: ACUTE MYELOID LEUKAEMIA
     Dosage: 110 MG, INDUCTION, DAILY BY CONTINUOUS INFUSION
     Route: 041
     Dates: start: 20190907, end: 20190909
  2. CYTARABINE. [Suspect]
     Active Substance: CYTARABINE
     Dosage: 4980 MG, CONSOLIDATION, OVER 3 HOURS TWICE DAILY ON DAYS 1,3,5
     Route: 042
     Dates: start: 20191211, end: 20191216
  3. CYTARABINE. [Suspect]
     Active Substance: CYTARABINE
     Indication: ACUTE MYELOID LEUKAEMIA
     Dosage: 185 MG, INDUCTION, DAILY BY CONTINUOUS INFUSION
     Route: 041
     Dates: start: 20190907, end: 20190913
  4. CYTARABINE. [Suspect]
     Active Substance: CYTARABINE
     Indication: ACUTE MYELOID LEUKAEMIA
     Dosage: 5.010 G, CONSOLIDATION WITH SINGLE-AGENT CYTARABINE, OVER 3 HOURS TWICE DAILY ON DAYS 1,3,5
     Route: 042
     Dates: start: 20191029, end: 20191102
  5. GLASDEGIB [Suspect]
     Active Substance: GLASDEGIB
     Indication: ACUTE MYELOID LEUKAEMIA
     Dosage: UNK, ONCE DAILY CONTINUOUS
     Route: 048
     Dates: start: 20190907

REACTIONS (1)
  - Vascular device infection [Recovered/Resolved]

NARRATIVE: CASE EVENT DATE: 20191223
